FAERS Safety Report 25187374 (Version 1)
Quarter: 2025Q2

REPORT INFORMATION
  Report Type: Spontaneous
  Country: CN (occurrence: CN)
  Receive Date: 20250411
  Receipt Date: 20250411
  Transmission Date: 20250717
  Serious: Yes (Other)
  Sender: AMGEN
  Company Number: CN-SERVIER-S25004358

PATIENT

DRUGS (15)
  1. IVABRADINE [Suspect]
     Active Substance: IVABRADINE
     Indication: Pulmonary hypertension
     Route: 065
     Dates: start: 202201, end: 202212
  2. IVABRADINE [Suspect]
     Active Substance: IVABRADINE
     Indication: Atrial fibrillation
  3. IVABRADINE [Suspect]
     Active Substance: IVABRADINE
     Indication: Acute myocardial infarction
  4. IVABRADINE [Suspect]
     Active Substance: IVABRADINE
     Indication: Hepatic cirrhosis
  5. IVABRADINE [Suspect]
     Active Substance: IVABRADINE
     Indication: Cardiac failure acute
  6. IVABRADINE [Suspect]
     Active Substance: IVABRADINE
     Indication: Cardiac failure
  7. IVABRADINE [Suspect]
     Active Substance: IVABRADINE
     Indication: Hepatic failure
  8. IVABRADINE [Suspect]
     Active Substance: IVABRADINE
     Indication: Haemodynamic instability
  9. VERAPAMIL [Suspect]
     Active Substance: VERAPAMIL HYDROCHLORIDE
     Indication: Product used for unknown indication
     Route: 065
  10. DILTIAZEM [Suspect]
     Active Substance: DILTIAZEM
     Indication: Product used for unknown indication
     Route: 065
  11. CLARITHROMYCIN [Suspect]
     Active Substance: CLARITHROMYCIN
     Indication: Product used for unknown indication
     Route: 065
  12. RITONAVIR [Suspect]
     Active Substance: RITONAVIR
     Indication: Product used for unknown indication
     Route: 065
  13. AMIODARONE [Concomitant]
     Active Substance: AMIODARONE
     Indication: Product used for unknown indication
     Route: 065
  14. SOTALOL [Concomitant]
     Active Substance: SOTALOL
     Indication: Product used for unknown indication
     Route: 065
  15. FLUCONAZOLE [Concomitant]
     Active Substance: FLUCONAZOLE
     Indication: Product used for unknown indication
     Route: 065

REACTIONS (6)
  - Cerebrovascular accident [Unknown]
  - Atrial fibrillation [Recovered/Resolved]
  - Bradycardia [Recovered/Resolved]
  - Product use issue [Recovered/Resolved]
  - Contraindicated product administered [Recovered/Resolved]
  - Incorrect dose administered [Recovered/Resolved]
